FAERS Safety Report 17688260 (Version 2)
Quarter: 2020Q3

REPORT INFORMATION
  Report Type: Spontaneous
  Country: CL (occurrence: CL)
  Receive Date: 20200421
  Receipt Date: 20200728
  Transmission Date: 20201102
  Serious: Yes (Hospitalization, Other)
  Sender: FDA-Public Use
  Company Number: CL-LUPIN PHARMACEUTICALS INC.-2020-01691

PATIENT
  Age: 79 Year
  Sex: Female

DRUGS (4)
  1. METRONIDAZOLE. [Suspect]
     Active Substance: METRONIDAZOLE
     Indication: PSOAS ABSCESS
     Dosage: 500 MILLIGRAM, TID
     Route: 048
  2. METRONIDAZOLE. [Suspect]
     Active Substance: METRONIDAZOLE
     Indication: INFECTIVE AORTITIS
  3. CIPROFLOXACIN. [Concomitant]
     Active Substance: CIPROFLOXACIN
     Indication: PSOAS ABSCESS
     Dosage: 500 MILLIGRAM, BID
     Route: 048
  4. CIPROFLOXACIN. [Concomitant]
     Active Substance: CIPROFLOXACIN
     Indication: INFECTIVE AORTITIS

REACTIONS (7)
  - Neurotoxicity [Not Recovered/Not Resolved]
  - Neuropathy peripheral [Unknown]
  - Cerebellar ataxia [Recovered/Resolved]
  - Cerebellar syndrome [Recovered/Resolved]
  - Toxic encephalopathy [Unknown]
  - Polyneuropathy [Unknown]
  - Toxicity to various agents [Unknown]
